FAERS Safety Report 19447418 (Version 1)
Quarter: 2021Q2

REPORT INFORMATION
  Report Type: Spontaneous
  Country: US (occurrence: US)
  Receive Date: 20210621
  Receipt Date: 20210621
  Transmission Date: 20210717
  Serious: No
  Sender: FDA-Public Use
  Company Number: None

PATIENT
  Age: 55 Year
  Sex: Female

DRUGS (7)
  1. GABAPENTIN. [Concomitant]
     Active Substance: GABAPENTIN
  2. HYDROCODONE/ACETAMINOPHEN [Concomitant]
     Active Substance: ACETAMINOPHEN\HYDROCODONE
  3. HYDROCODONE ACETAMIN [Suspect]
     Active Substance: ACETAMINOPHEN\HYDROCODONE BITARTRATE
     Indication: INTERVERTEBRAL DISC DEGENERATION
     Route: 048
  4. HYDROCODONE?ACETAMIN 10/325 [Suspect]
     Active Substance: ACETAMINOPHEN\HYDROCODONE
     Indication: INTERVERTEBRAL DISC DEGENERATION
     Dosage: ?          OTHER FREQUENCY:EVERY 4?6 HOURS;?
     Route: 048
     Dates: start: 20210514, end: 20210614
  5. CLONADINE [Concomitant]
  6. QUETIAPINE. [Concomitant]
     Active Substance: QUETIAPINE
  7. GENERIC FLEXRILL [Concomitant]

REACTIONS (4)
  - Vomiting [None]
  - Product substitution issue [None]
  - Nausea [None]
  - Inadequate analgesia [None]

NARRATIVE: CASE EVENT DATE: 20210314
